FAERS Safety Report 7995764-4 (Version None)
Quarter: 2011Q4

REPORT INFORMATION
  Report Type: 
  Country: None (occurrence: None)
  Receive Date: 20111220
  Receipt Date: 20111216
  Transmission Date: 20120403
  Serious: Yes (Death)
  Sender: FDA-Public Use
  Company Number: FR-ASTRAZENECA-2011SE69962

PATIENT
  Age: 513 Month
  Sex: Female

DRUGS (5)
  1. QUETIAPINE FUMARATE [Suspect]
     Route: 048
     Dates: start: 20111024, end: 20111024
  2. LITHIUM CARBONATE [Suspect]
     Indication: BIPOLAR DISORDER
     Dosage: 250 MG TWO TABLETS IN THE MORNING AND THREE TABLETS IN THE EVENING
     Route: 048
     Dates: start: 20111007, end: 20111111
  3. QUETIAPINE FUMARATE [Suspect]
     Route: 048
     Dates: start: 20111026, end: 20111111
  4. QUETIAPINE FUMARATE [Suspect]
     Indication: BIPOLAR I DISORDER
     Route: 048
     Dates: start: 20111023, end: 20111023
  5. QUETIAPINE FUMARATE [Suspect]
     Route: 048
     Dates: start: 20111025, end: 20111025

REACTIONS (3)
  - OEDEMA PERIPHERAL [None]
  - COMPLETED SUICIDE [None]
  - EYELID OEDEMA [None]
